FAERS Safety Report 9376332 (Version 1)
Quarter: 2013Q3

REPORT INFORMATION
  Report Type: Spontaneous
  Country: US (occurrence: US)
  Receive Date: 20130701
  Receipt Date: 20130701
  Transmission Date: 20140515
  Serious: No
  Sender: FDA-Public Use
  Company Number: US-009507513-1306USA011684

PATIENT
  Sex: Male

DRUGS (1)
  1. JANUMET [Suspect]
     Indication: DIABETES MELLITUS
     Dosage: 2 TIMES DAILY
     Route: 048
     Dates: start: 2009, end: 20130603

REACTIONS (5)
  - Renal failure chronic [Not Recovered/Not Resolved]
  - Blood urine [Not Recovered/Not Resolved]
  - Hypotension [Not Recovered/Not Resolved]
  - Blood glucose increased [Not Recovered/Not Resolved]
  - Weight decreased [Not Recovered/Not Resolved]
